FAERS Safety Report 20519116 (Version 1)
Quarter: 2022Q1

REPORT INFORMATION
  Report Type: Spontaneous
  Country: US (occurrence: None)
  Receive Date: 20220225
  Receipt Date: 20220225
  Transmission Date: 20220423
  Serious: Yes (Hospitalization)
  Sender: FDA-Public Use
  Company Number: None

PATIENT
  Age: 50 Year
  Weight: 112.5 kg

DRUGS (1)
  1. JARDIANCE [Suspect]
     Active Substance: EMPAGLIFLOZIN
     Indication: Diabetes mellitus management
     Dates: start: 20210301, end: 20220210

REACTIONS (3)
  - Fournier^s gangrene [None]
  - Illness [None]
  - Product label issue [None]

NARRATIVE: CASE EVENT DATE: 20220211
